FAERS Safety Report 9274717 (Version 2)
Quarter: 2013Q2

REPORT INFORMATION
  Report Type: Spontaneous
  Country: US (occurrence: None)
  Receive Date: 20130429
  Receipt Date: 20130429
  Transmission Date: 20140414
  Serious: Yes (Hospitalization, Other)
  Sender: FDA-Public Use
  Company Number: US-ZYDUS-001088

PATIENT
  Age: 13 Year
  Sex: Female

DRUGS (2)
  1. AMLODIPINE [Suspect]
  2. BUTALBITAL [Suspect]

REACTIONS (11)
  - Lactic acidosis [None]
  - Metabolic acidosis [None]
  - Heart rate increased [None]
  - Fatigue [None]
  - Intentional overdose [None]
  - Nausea [None]
  - Vomiting [None]
  - Organ failure [None]
  - Somnolence [None]
  - Hypotension [None]
  - Mental status changes [None]
